FAERS Safety Report 20113843 (Version 40)
Quarter: 2025Q2

REPORT INFORMATION
  Report Type: Spontaneous
  Country: PL (occurrence: PL)
  Receive Date: 20211125
  Receipt Date: 20250523
  Transmission Date: 20250717
  Serious: Yes (Hospitalization, Other)
  Sender: MYLAN
  Company Number: PL-002147023-NVSC2021PL213803

PATIENT
  Age: 60 Year
  Sex: Male

DRUGS (73)
  1. PANTOPRAZOLE [Suspect]
     Active Substance: PANTOPRAZOLE
     Indication: Cardiac failure chronic
  2. PANTOPRAZOLE [Suspect]
     Active Substance: PANTOPRAZOLE
  3. ROSUVASTATIN [Suspect]
     Active Substance: ROSUVASTATIN
     Indication: Cardiac failure chronic
     Dosage: 40 MILLIGRAM, QD
  4. ROSUVASTATIN [Suspect]
     Active Substance: ROSUVASTATIN
     Indication: Cardiac failure chronic
     Dosage: 40 MG, QD
  5. ROSUVASTATIN [Suspect]
     Active Substance: ROSUVASTATIN
     Indication: Cardiac failure chronic
  6. ROSUVASTATIN [Suspect]
     Active Substance: ROSUVASTATIN
     Indication: Cardiac failure chronic
  7. CLOPIDOGREL [Suspect]
     Active Substance: CLOPIDOGREL BISULFATE
     Indication: Cardiac failure chronic
     Dosage: 75 MILLIGRAM, QD (75 MG, QD)
  8. ASPIRIN [Suspect]
     Active Substance: ASPIRIN
     Indication: Cardiac failure chronic
     Dosage: 75 MILLIGRAM, QD (75 MG, QD)
  9. ASPIRIN [Suspect]
     Active Substance: ASPIRIN
     Indication: Cardiac failure chronic
  10. ASPIRIN [Suspect]
     Active Substance: ASPIRIN
     Indication: Cardiac failure chronic
  11. CLOPIDOGREL BISULFATE [Suspect]
     Active Substance: CLOPIDOGREL BISULFATE
     Indication: Cardiac failure chronic
     Dosage: 75 MG, QD
  12. CLOPIDOGREL BISULFATE [Suspect]
     Active Substance: CLOPIDOGREL BISULFATE
     Indication: Cardiac failure chronic
  13. CLOPIDOGREL BISULFATE [Suspect]
     Active Substance: CLOPIDOGREL BISULFATE
     Indication: Cardiac failure chronic
     Dosage: 75 MILLIGRAM, QD
  14. ASPIRIN [Suspect]
     Active Substance: ASPIRIN
     Indication: Cardiac failure chronic
     Dosage: 75 MILLIGRAM, QD
  15. CLOPIDOGREL BISULFATE [Suspect]
     Active Substance: CLOPIDOGREL BISULFATE
     Indication: Cardiac failure chronic
     Dosage: 75 MILLIGRAM, QD
  16. VALSARTAN [Suspect]
     Active Substance: VALSARTAN
     Indication: Product used for unknown indication
  17. CLOPIDOGREL BISULFATE [Suspect]
     Active Substance: CLOPIDOGREL BISULFATE
     Indication: Cardiac failure chronic
     Dosage: 75 MILLIGRAM, QD
  18. RAMIPRIL [Suspect]
     Active Substance: RAMIPRIL
     Indication: Cardiac failure chronic
     Dosage: 2.5 MILLIGRAM, QD
  19. RAMIPRIL [Suspect]
     Active Substance: RAMIPRIL
     Dosage: 20 MG, QD
  20. RAMIPRIL [Suspect]
     Active Substance: RAMIPRIL
     Dosage: 3 MG, QD
  21. FUROSEMIDE [Suspect]
     Active Substance: FUROSEMIDE
     Indication: Cardiac failure chronic
  22. FUROSEMIDE [Suspect]
     Active Substance: FUROSEMIDE
     Indication: Cardiac failure chronic
  23. FUROSEMIDE [Suspect]
     Active Substance: FUROSEMIDE
  24. FUROSEMIDE [Suspect]
     Active Substance: FUROSEMIDE
  25. BISOPROLOL [Suspect]
     Active Substance: BISOPROLOL
     Indication: Cardiac failure chronic
     Dosage: 2.5 MILLIGRAM, QD
  26. BISOPROLOL [Suspect]
     Active Substance: BISOPROLOL
  27. BISOPROLOL [Suspect]
     Active Substance: BISOPROLOL
     Dosage: 2.5 MILLIGRAM, QD
  28. BISOPROLOL [Suspect]
     Active Substance: BISOPROLOL
     Dosage: 3 MILLIGRAM, QD
  29. BISOPROLOL [Suspect]
     Active Substance: BISOPROLOL
     Dosage: 2.5 MG,QD
  30. APIXABAN [Suspect]
     Active Substance: APIXABAN
     Indication: Cardiac failure chronic
     Dosage: 3 MILLIGRAM, BID (2.5 MG, QD)
  31. APIXABAN [Suspect]
     Active Substance: APIXABAN
     Indication: Cardiac failure chronic
     Dosage: 2.5 MG, QD
  32. APIXABAN [Suspect]
     Active Substance: APIXABAN
     Dosage: 2.5 MG, BID
  33. APIXABAN [Suspect]
     Active Substance: APIXABAN
     Dosage: 2.5 MG, BID
  34. APIXABAN [Suspect]
     Active Substance: APIXABAN
     Dosage: 10 MILLIGRAM, QD (5 MG, BID)
  35. APIXABAN [Suspect]
     Active Substance: APIXABAN
     Dosage: 5 MG, QD, 2.5 MG, BID
  36. APIXABAN [Suspect]
     Active Substance: APIXABAN
     Dosage: 7 MILLIGRAM, QD (3.5 MG 12 HOURS)
  37. APIXABAN [Suspect]
     Active Substance: APIXABAN
     Dosage: 6 MILLIGRAM, QD (3 MG, BID)
  38. APIXABAN [Suspect]
     Active Substance: APIXABAN
     Dosage: 2.5 MILLIGRAM, BID
  39. APIXABAN [Suspect]
     Active Substance: APIXABAN
     Dosage: 2.5 MILLIGRAM, BID
  40. APIXABAN [Suspect]
     Active Substance: APIXABAN
     Dosage: 2.5 MILLIGRAM, BID
  41. APIXABAN [Suspect]
     Active Substance: APIXABAN
     Dosage: 12 MILLIGRAM, QD, 6 MG, BID
  42. TORSEMIDE [Suspect]
     Active Substance: TORSEMIDE
     Indication: Cardiac failure chronic
  43. TORSEMIDE [Suspect]
     Active Substance: TORSEMIDE
  44. OMEPRAZOLE [Suspect]
     Active Substance: OMEPRAZOLE
     Indication: Cardiac failure chronic
  45. BISOPROLOL FUMARATE [Suspect]
     Active Substance: BISOPROLOL FUMARATE
     Indication: Cardiac failure chronic
     Dosage: 2.5 MG, QD
  46. BISOPROLOL FUMARATE [Suspect]
     Active Substance: BISOPROLOL FUMARATE
     Dosage: 2.5 MG, QD
  47. BISOPROLOL FUMARATE [Suspect]
     Active Substance: BISOPROLOL FUMARATE
     Dosage: 3 MG, QD
  48. PANTOPRAZOLE SODIUM [Suspect]
     Active Substance: PANTOPRAZOLE SODIUM
     Indication: Cardiac failure chronic
  49. PANTOPRAZOLE SODIUM [Suspect]
     Active Substance: PANTOPRAZOLE SODIUM
  50. PANTOPRAZOLE SODIUM [Suspect]
     Active Substance: PANTOPRAZOLE SODIUM
     Indication: Cardiac failure chronic
  51. PANTOPRAZOLE SODIUM [Suspect]
     Active Substance: PANTOPRAZOLE SODIUM
  52. PANTOPRAZOLE SODIUM [Suspect]
     Active Substance: PANTOPRAZOLE SODIUM
  53. PANTOPRAZOLE SODIUM [Suspect]
     Active Substance: PANTOPRAZOLE SODIUM
  54. PANTOPRAZOLE SODIUM [Suspect]
     Active Substance: PANTOPRAZOLE SODIUM
  55. PANTOPRAZOLE SODIUM [Suspect]
     Active Substance: PANTOPRAZOLE SODIUM
  56. PANTOPRAZOLE SODIUM [Suspect]
     Active Substance: PANTOPRAZOLE SODIUM
  57. RAMIPRIL [Suspect]
     Active Substance: RAMIPRIL
     Indication: Cardiac failure chronic
     Dosage: 2.5 MILLIGRAM, QD (2.5 MG, QD)
  58. RAMIPRIL [Suspect]
     Active Substance: RAMIPRIL
     Dosage: 20 MILLIGRAM, QD (20 MG, QD)
  59. RAMIPRIL [Suspect]
     Active Substance: RAMIPRIL
     Dosage: 2.5 MILLIGRAM, QD (2.5 MG, QD)
  60. RAMIPRIL [Suspect]
     Active Substance: RAMIPRIL
     Dosage: QD,2.5 G DAILY / 2.5 MG DAILY / 20 MG DAILY
  61. RAMIPRIL [Suspect]
     Active Substance: RAMIPRIL
     Dosage: QD,2.5 G DAILY / 2.5 MG DAILY / 20 MG DAILY
  62. RAMIPRIL [Suspect]
     Active Substance: RAMIPRIL
     Dosage: QD,2.5 G DAILY / 2.5 MG DAILY / 20 MG DAILY
  63. RAMIPRIL [Suspect]
     Active Substance: RAMIPRIL
     Dosage: 20 MILLIGRAM, QD, 20 MG, QD
  64. SACUBITRIL [Suspect]
     Active Substance: SACUBITRIL
     Indication: Product used for unknown indication
  65. ENTRESTO [Concomitant]
     Active Substance: SACUBITRIL\VALSARTAN
     Indication: Product used for unknown indication
  66. ENTRESTO [Concomitant]
     Active Substance: SACUBITRIL\VALSARTAN
  67. ENTRESTO [Concomitant]
     Active Substance: SACUBITRIL\VALSARTAN
  68. ENTRESTO [Concomitant]
     Active Substance: SACUBITRIL\VALSARTAN
  69. ENTRESTO [Concomitant]
     Active Substance: SACUBITRIL\VALSARTAN
  70. ENTRESTO [Concomitant]
     Active Substance: SACUBITRIL\VALSARTAN
  71. ENTRESTO [Concomitant]
     Active Substance: SACUBITRIL\VALSARTAN
  72. ENTRESTO [Concomitant]
     Active Substance: SACUBITRIL\VALSARTAN
  73. ENTRESTO [Concomitant]
     Active Substance: SACUBITRIL\VALSARTAN

REACTIONS (9)
  - Cardiac failure chronic [Unknown]
  - Atrial fibrillation [Unknown]
  - Myocardial infarction [Unknown]
  - Cardiac failure [Recovering/Resolving]
  - Drug abuse [Unknown]
  - Dyslipidaemia [Unknown]
  - Product use in unapproved indication [Unknown]
  - Intentional product use issue [Unknown]
  - Off label use [Unknown]

NARRATIVE: CASE EVENT DATE: 20201001
